FAERS Safety Report 8962352 (Version 1)
Quarter: 2012Q4

REPORT INFORMATION
  Report Type: Spontaneous
  Country: US (occurrence: None)
  Receive Date: 20121211
  Receipt Date: 20121211
  Transmission Date: 20130627
  Serious: No
  Sender: FDA-Public Use
  Company Number: None

PATIENT
  Age: 76 Year
  Sex: Male
  Weight: 78.02 kg

DRUGS (5)
  1. GLIPIZIDE XL [Suspect]
     Indication: TYPE 2 DIABETES MELLITUS
     Dosage: 1 tablet by Mouth every morning
     Route: 048
     Dates: start: 20120215
  2. GLIPIZIDE XL [Suspect]
     Indication: TYPE 2 DIABETES MELLITUS
     Dates: start: 20120216
  3. GLIPIZIDE XL [Suspect]
     Indication: TYPE 2 DIABETES MELLITUS
     Dates: start: 20120217
  4. GLIPIZIDE XL [Suspect]
     Indication: TYPE 2 DIABETES MELLITUS
     Dates: start: 20120218
  5. GLUCOTROL XL [Suspect]

REACTIONS (5)
  - Vertigo [None]
  - Dizziness [None]
  - Vertigo [None]
  - Dysstasia [None]
  - Gait disturbance [None]
